FAERS Safety Report 9942790 (Version 1)
Quarter: 2014Q1

REPORT INFORMATION
  Report Type: Report from Study
  Country: US (occurrence: US)
  Receive Date: 20140303
  Receipt Date: 20140303
  Transmission Date: 20141002
  Serious: No
  Sender: FDA-Public Use
  Company Number: US-ABBVIE-13P-163-1047941-00

PATIENT
  Age: 64 Year
  Sex: Female

DRUGS (13)
  1. HUMIRA [Suspect]
     Indication: RHEUMATOID ARTHRITIS
     Dates: start: 20110222
  2. TENORMIN [Concomitant]
     Indication: HYPERTENSION
  3. DIAZIDE [Concomitant]
     Indication: HYPERTENSION
     Dosage: 37.5 MG DAILY
  4. FOLIC ACID [Concomitant]
     Indication: VITAMIN SUPPLEMENTATION
     Dosage: 2 MG DAILY
  5. METHOTREXATE [Concomitant]
     Indication: RHEUMATOID ARTHRITIS
     Dosage: 20 MG WEEKLY
  6. ESTRADIOL [Concomitant]
     Indication: OESTROGEN THERAPY
     Dosage: 0.5 MG DAILY
  7. VERAPAMIL [Concomitant]
     Indication: HYPERTENSION
  8. PROZAC [Concomitant]
     Indication: DEPRESSION
     Dosage: 20 MG DAILY
  9. FLEXERIL [Concomitant]
     Indication: INSOMNIA
     Dosage: 10MG X 2 TABLETS AT NIGHT
  10. XANAX [Concomitant]
     Indication: INSOMNIA
     Dosage: AT NIGHT; AS REQUIRED
  11. PRAVACHOL [Concomitant]
     Indication: BLOOD CHOLESTEROL INCREASED
     Dosage: 40 MG DAILY
  12. HYDROCHLOROTHIAZIDE [Concomitant]
     Indication: SWELLING
     Dosage: 50 MG DAILY
  13. CHLOROPHALID [Concomitant]
     Indication: SWELLING
     Dosage: 50 MG DAILY

REACTIONS (5)
  - Fatigue [Recovering/Resolving]
  - Pain [Recovering/Resolving]
  - Pyrexia [Recovering/Resolving]
  - Nausea [Recovering/Resolving]
  - Diarrhoea [Recovering/Resolving]
